FAERS Safety Report 16832417 (Version 1)
Quarter: 2019Q3

REPORT INFORMATION
  Report Type: Spontaneous
  Country: US (occurrence: US)
  Receive Date: 20190920
  Receipt Date: 20190920
  Transmission Date: 20191005
  Serious: No
  Sender: FDA-Public Use
  Company Number: US-BRAINTREE LABORATORIES-190407

PATIENT
  Age: 60 Year
  Sex: Male
  Weight: 103.41 kg

DRUGS (1)
  1. SUPREP BOWEL PREP [Suspect]
     Active Substance: MAGNESIUM SULFATE\POTASSIUM SULFATE\SODIUM SULFATE
     Indication: COLONOSCOPY
     Dosage: 2 X 6 OZ. BOTTLE
     Route: 048
     Dates: start: 20190721, end: 20190722

REACTIONS (7)
  - Irritability [None]
  - Nausea [None]
  - Chest pain [None]
  - Fatigue [None]
  - Headache [None]
  - Blood glucose increased [None]
  - Haematemesis [None]

NARRATIVE: CASE EVENT DATE: 20190721
